FAERS Safety Report 5514230-9 (Version None)
Quarter: 2007Q4

REPORT INFORMATION
  Report Type: 
  Country: None (occurrence: None)
  Receive Date: 20071113
  Receipt Date: 20071102
  Transmission Date: 20080405
  Serious: Yes (Hospitalization)
  Sender: FDA-Public Use
  Company Number: NO-NOVOPROD-269160

PATIENT
  Sex: Male

DRUGS (4)
  1. NOVORAPID [Suspect]
     Indication: INSULIN-REQUIRING TYPE II DIABETES MELLITUS
     Dosage: UNK, PRN
     Route: 058
     Dates: start: 20030101, end: 20070101
  2. HUMALOG [Suspect]
     Indication: INSULIN-REQUIRING TYPE II DIABETES MELLITUS
     Dosage: 8 IU, UNK
     Route: 058
     Dates: start: 20070801, end: 20071001
  3. HUMULIN                            /00646001/ [Suspect]
  4. METFORMIN HCL [Concomitant]
     Indication: INSULIN-REQUIRING TYPE II DIABETES MELLITUS
     Dosage: UNK, UNK
     Route: 048
     Dates: start: 20030101, end: 20071001

REACTIONS (5)
  - CONJUNCTIVITIS ALLERGIC [None]
  - DIZZINESS [None]
  - ERYTHEMA [None]
  - FEELING HOT [None]
  - HYPOAESTHESIA ORAL [None]
